FAERS Safety Report 14677229 (Version 1)
Quarter: 2018Q1

REPORT INFORMATION
  Report Type: Spontaneous
  Country: US (occurrence: US)
  Receive Date: 20180323
  Receipt Date: 20180323
  Transmission Date: 20180509
  Serious: Yes (Other)
  Sender: FDA-Public Use
  Company Number: None

PATIENT
  Age: 57 Year
  Sex: Female
  Weight: 117 kg

DRUGS (11)
  1. PRISTIQ EXTENDED-RELEASE [Concomitant]
     Active Substance: DESVENLAFAXINE SUCCINATE
  2. OXYCODONE [Concomitant]
     Active Substance: OXYCODONE
  3. MAGNESIUM [Concomitant]
     Active Substance: MAGNESIUM
  4. AMBIEN [Concomitant]
     Active Substance: ZOLPIDEM TARTRATE
  5. VIIBRYD [Suspect]
     Active Substance: VILAZODONE HYDROCHLORIDE
     Indication: DEPRESSION
     Dosage: ?          QUANTITY:1 TABLET(S);?
     Route: 048
     Dates: start: 20180203, end: 20180306
  6. VIIBRYD [Suspect]
     Active Substance: VILAZODONE HYDROCHLORIDE
     Indication: ANXIETY
     Dosage: ?          QUANTITY:1 TABLET(S);?
     Route: 048
     Dates: start: 20180203, end: 20180306
  7. TRAMADOL. [Concomitant]
     Active Substance: TRAMADOL
  8. PREDNISONE. [Concomitant]
     Active Substance: PREDNISONE
  9. XANAX [Concomitant]
     Active Substance: ALPRAZOLAM
  10. BACLOFIN [Concomitant]
  11. ACETAZOLAMIDE. [Concomitant]
     Active Substance: ACETAZOLAMIDE

REACTIONS (9)
  - Confusional state [None]
  - Diarrhoea [None]
  - Agitation [None]
  - Mood swings [None]
  - Gastrooesophageal reflux disease [None]
  - Abdominal pain upper [None]
  - Groin pain [None]
  - Flatulence [None]
  - Arthralgia [None]

NARRATIVE: CASE EVENT DATE: 20080215
